FAERS Safety Report 15059346 (Version 3)
Quarter: 2018Q3

REPORT INFORMATION
  Report Type: Report from Study
  Country: CA (occurrence: CA)
  Receive Date: 20180625
  Receipt Date: 20180821
  Transmission Date: 20181010
  Serious: Yes (Life-Threatening)
  Sender: FDA-Public Use
  Company Number: CA-JNJFOC-20180620802

PATIENT
  Sex: Female
  Weight: 69.9 kg

DRUGS (1)
  1. STELARA [Suspect]
     Active Substance: USTEKINUMAB
     Indication: PSORIASIS
     Route: 058
     Dates: start: 20171024, end: 20180525

REACTIONS (2)
  - Hepatic failure [Recovering/Resolving]
  - Renal failure [Not Recovered/Not Resolved]
